FAERS Safety Report 8747800 (Version 2)
Quarter: 2012Q4

REPORT INFORMATION
  Report Type: 
  Country: CA (occurrence: CA)
  Receive Date: 20120827
  Receipt Date: 20121008
  Transmission Date: 20130627
  Serious: Yes (Death, Hospitalization)
  Sender: FDA-Public Use
  Company Number: CA-BRISTOL-MYERS SQUIBB COMPANY-16865255

PATIENT
  Age: 29 Year
  Sex: Male

DRUGS (1)
  1. YERVOY [Suspect]
     Indication: METASTATIC MALIGNANT MELANOMA
     Dosage: Inf:1,Last dose on 2Aug12
     Route: 042
     Dates: start: 20120802, end: 20120802

REACTIONS (3)
  - Malignant neoplasm progression [Fatal]
  - Dizziness [Unknown]
  - Nausea [Unknown]
